FAERS Safety Report 4429981-7 (Version None)
Quarter: 2004Q3

REPORT INFORMATION
  Report Type: 
  Country: None (occurrence: None)
  Receive Date: 20040816
  Receipt Date: 20040802
  Transmission Date: 20050211
  Serious: Yes (Other)
  Sender: FDA-Public Use
  Company Number: 2004052387

PATIENT
  Age: 72 Year
  Sex: Male

DRUGS (5)
  1. LIPITOR [Suspect]
     Indication: ILL-DEFINED DISORDER
     Dosage: 40 MG
  2. CLOPIDOGREL BISULFATE [Concomitant]
  3. NIFEDIPINE [Concomitant]
  4. GLICLAZIDE (GLICLAZIDE) [Concomitant]
  5. SALBUTAMOL (SALBUTAMOL) [Concomitant]

REACTIONS (2)
  - MESOTHELIOMA [None]
  - MUSCULAR WEAKNESS [None]
